FAERS Safety Report 6408467-4 (Version None)
Quarter: 2009Q4

REPORT INFORMATION
  Report Type: 
  Country: None (occurrence: None)
  Receive Date: 20091021
  Receipt Date: 20091014
  Transmission Date: 20100525
  Serious: Yes (Death)
  Sender: FDA-Public Use
  Company Number: CH-TEVA-212580ISR

PATIENT
  Age: 68 Year
  Sex: Male
  Weight: 66.5 kg

DRUGS (8)
  1. FLUOROURACIL [Suspect]
     Route: 041
     Dates: start: 20090526, end: 20090529
  2. CISPLATIN [Suspect]
     Route: 041
     Dates: start: 20090526, end: 20090526
  3. PARACETAMOL [Concomitant]
     Route: 041
     Dates: start: 20090604
  4. PRIMAXIN [Concomitant]
     Route: 041
     Dates: start: 20090605
  5. ENOXAPARIN SODIUM [Concomitant]
     Route: 058
     Dates: start: 20090604, end: 20090605
  6. OLANZAPINE [Concomitant]
     Route: 048
  7. DOMPERIDONE [Concomitant]
     Route: 048
     Dates: start: 20090603, end: 20090605
  8. LEVOTHYROXINE SODIUM [Concomitant]
     Route: 048

REACTIONS (4)
  - AGRANULOCYTOSIS [None]
  - DISSEMINATED INTRAVASCULAR COAGULATION [None]
  - SEPTIC SHOCK [None]
  - THROMBOCYTOPENIA [None]
